FAERS Safety Report 10344173 (Version 3)
Quarter: 2014Q3

REPORT INFORMATION
  Report Type: Spontaneous
  Country: IT (occurrence: None)
  Receive Date: 20140724
  Receipt Date: 20140728
  Transmission Date: 20150326
  Serious: Yes (Hospitalization, Disabling, Other)
  Sender: FDA-Public Use
  Company Number: ADR-2014-01295

PATIENT
  Sex: Male

DRUGS (13)
  1. BACLOFEN. [Suspect]
     Active Substance: BACLOFEN
     Indication: DYSTONIA
  2. PHENOBARBITAL. [Suspect]
     Active Substance: PHENOBARBITAL
  3. AMITRIPTYLINE [Suspect]
     Active Substance: AMITRIPTYLINE
  4. GABAPENTIN. [Suspect]
     Active Substance: GABAPENTIN
  5. TETRABENAZINE [Suspect]
     Active Substance: TETRABENAZINE
  6. NITRAZEPAM [Suspect]
     Active Substance: NITRAZEPAM
  7. THIOPENTONE [Suspect]
     Active Substance: THIOPENTAL SODIUM
  8. TIZANIDINE [Suspect]
     Active Substance: TIZANIDINE
  9. RISPERIDONE. [Suspect]
     Active Substance: RISPERIDONE
  10. DIAZEPAM. [Suspect]
     Active Substance: DIAZEPAM
  11. MIDAZOLAM [Suspect]
     Active Substance: MIDAZOLAM\MIDAZOLAM HYDROCHLORIDE
  12. CLONAZEPAM. [Suspect]
     Active Substance: CLONAZEPAM
  13. VALPROIC ACID. [Suspect]
     Active Substance: VALPROIC ACID

REACTIONS (14)
  - Pain [None]
  - Pneumonitis [None]
  - Mononucleosis syndrome [None]
  - Pneumonia [None]
  - Oromandibular dystonia [None]
  - Tongue disorder [None]
  - No therapeutic response [None]
  - Malnutrition [None]
  - Discomfort [None]
  - Traumatic amputation [None]
  - Respiratory tract infection [None]
  - Dystonia [None]
  - Muscle spasms [None]
  - Cerebral atrophy [None]
